FAERS Safety Report 24867617 (Version 1)
Quarter: 2025Q1

REPORT INFORMATION
  Report Type: Spontaneous
  Country: US (occurrence: None)
  Receive Date: 20250120
  Receipt Date: 20250120
  Transmission Date: 20250409
  Serious: Yes (Hospitalization)
  Sender: FDA-CTU
  Company Number: None

PATIENT
  Sex: Female

DRUGS (11)
  1. RINVOQ [Suspect]
     Active Substance: UPADACITINIB
     Indication: Rheumatoid arthritis
     Dosage: FREQUENCY : DAILY;?
     Route: 048
     Dates: start: 20241219
  2. CLOBETASOL SHA0.05^% [Concomitant]
  3. DULOXETINE CAP 60MG [Concomitant]
  4. ENALAPRIL TAB 10MG [Concomitant]
  5. ENALAPRIL TAB5MG [Concomitant]
  6. FLUOXETINE CAP 20MG [Concomitant]
  7. FOLIC ACID TAB 1000MCG [Concomitant]
  8. FOLIC ACID TAB 400MCG [Concomitant]
  9. HUMIRA INJ 40/0.4ML [Concomitant]
  10. HYDROXYCHLOROQUINE [Concomitant]
     Active Substance: HYDROXYCHLOROQUINE
  11. LAMOTRIGINE TAB 100MG [Concomitant]

REACTIONS (2)
  - Food poisoning [None]
  - Therapy interrupted [None]
